FAERS Safety Report 9792881 (Version 1)
Quarter: 2014Q1

REPORT INFORMATION
  Report Type: Spontaneous
  Country: US (occurrence: US)
  Receive Date: 20140102
  Receipt Date: 20140102
  Transmission Date: 20141002
  Serious: No
  Sender: FDA-Public Use
  Company Number: US-SA-2013SA118186

PATIENT
  Sex: Female

DRUGS (4)
  1. AUBAGIO [Suspect]
     Indication: MULTIPLE SCLEROSIS
     Route: 048
     Dates: start: 20130213
  2. VITAMIN D3 [Concomitant]
  3. IBUPROFEN [Concomitant]
  4. COPAXONE [Concomitant]
     Dosage: 20MG SYR 30EA SYR/KIT

REACTIONS (1)
  - Eye pain [Unknown]
